FAERS Safety Report 7643951-7 (Version None)
Quarter: 2011Q3

REPORT INFORMATION
  Report Type: 
  Country: None (occurrence: None)
  Receive Date: 20110729
  Receipt Date: 20110516
  Transmission Date: 20111222
  Serious: No
  Sender: FDA-Public Use
  Company Number: US-GLAXOSMITHKLINE-A0928583A

PATIENT
  Age: 60 Year
  Sex: Female

DRUGS (2)
  1. DYAZIDE [Suspect]
     Route: 048
     Dates: start: 20051014
  2. ADVAIR DISKUS 100/50 [Suspect]
     Route: 055
     Dates: start: 20051014

REACTIONS (5)
  - TOOTH DISORDER [None]
  - CYSTITIS [None]
  - MALAISE [None]
  - KIDNEY INFECTION [None]
  - SINUSITIS [None]
